FAERS Safety Report 8610793 (Version 5)
Quarter: 2012Q4

REPORT INFORMATION
  Report Type: 
  Country: HU (occurrence: HU)
  Receive Date: 20120612
  Receipt Date: 20120912
  Transmission Date: 20130627
  Serious: Yes (Hospitalization)
  Sender: FDA-Public Use
  Company Number: HU-ELI_LILLY_AND_COMPANY-HU201206000183

PATIENT
  Age: 62 Year
  Sex: Female

DRUGS (4)
  1. DULOXETINE HYDROCHLORIDE [Suspect]
     Indication: MAJOR DEPRESSION
     Dosage: 60 mg, qd
     Route: 048
     Dates: start: 20120523, end: 20120523
  2. FRONTIN [Concomitant]
     Indication: DEPRESSION
     Dosage: 0.5 mg, prn
  3. ATARAX                             /00058401/ [Concomitant]
     Indication: ANXIETY
     Dosage: 50 mg (12.5+12.5+25mg), qd
     Route: 048
  4. PIRACETAM [Concomitant]

REACTIONS (3)
  - Rash [Recovered/Resolved]
  - Urticaria [Recovered/Resolved]
  - Photosensitivity reaction [Recovered/Resolved]
